FAERS Safety Report 25881989 (Version 1)
Quarter: 2025Q4

REPORT INFORMATION
  Report Type: Spontaneous
  Country: BR (occurrence: BR)
  Receive Date: 20251005
  Receipt Date: 20251005
  Transmission Date: 20260117
  Serious: Yes (Other)
  Sender: BAXTER
  Company Number: BR-BAXTER-2025BAX021522

PATIENT
  Age: 17 Year
  Sex: Female
  Weight: 52 kg

DRUGS (8)
  1. IRON SUCROSE [Suspect]
     Active Substance: IRON SUCROSE
     Indication: Iron deficiency
     Dosage: 2 AMPOULES ON ALTERNATE DAYS
     Route: 042
     Dates: start: 20250723
  2. IRON SUCROSE [Suspect]
     Active Substance: IRON SUCROSE
     Dosage: 1 AMPOULE
     Route: 042
  3. SODIUM CHLORIDE [Suspect]
     Active Substance: SODIUM CHLORIDE
     Indication: Medication dilution
     Dosage: 250 ML, 0.9% SALINE SOLUTION (INFUSION PERFORMED IN 1 HOUR)
     Route: 042
     Dates: start: 20250723
  4. SODIUM CHLORIDE [Suspect]
     Active Substance: SODIUM CHLORIDE
     Dosage: 250 ML, 0.9% SALINE SOLUTION (SLOWER INFUSION)
     Route: 042
  5. ETHINYL ESTRADIOL\GESTODENE [Concomitant]
     Active Substance: ETHINYL ESTRADIOL\GESTODENE
     Indication: Heavy menstrual bleeding
     Dosage: 1 DOSAGE FORM (A DAY)
     Route: 048
     Dates: start: 202505
  6. ETHINYL ESTRADIOL\GESTODENE [Concomitant]
     Active Substance: ETHINYL ESTRADIOL\GESTODENE
     Indication: Anaemia
  7. FERROUS SULFATE [Concomitant]
     Active Substance: FERROUS SULFATE
     Indication: Heavy menstrual bleeding
     Dosage: 2 DOSAGE FORM (A DAY)
     Route: 048
     Dates: start: 202505
  8. FERROUS SULFATE [Concomitant]
     Active Substance: FERROUS SULFATE
     Indication: Anaemia

REACTIONS (3)
  - Vomiting [Recovered/Resolved]
  - Paraesthesia [Recovered/Resolved]
  - Chest pain [Recovered/Resolved]

NARRATIVE: CASE EVENT DATE: 20250723
